FAERS Safety Report 10965597 (Version 1)
Quarter: 2015Q1

REPORT INFORMATION
  Report Type: Spontaneous
  Country: IE (occurrence: IE)
  Receive Date: 20150330
  Receipt Date: 20150330
  Transmission Date: 20150721
  Serious: Yes (Other)
  Sender: FDA-Public Use
  Company Number: IE-JNJFOC-20150312448

PATIENT
  Sex: Female

DRUGS (1)
  1. INVEGA [Suspect]
     Active Substance: PALIPERIDONE
     Indication: PRODUCT USED FOR UNKNOWN INDICATION
     Route: 048

REACTIONS (9)
  - Nervous system disorder [Unknown]
  - Nail ridging [Unknown]
  - Burning sensation [Unknown]
  - Swollen tongue [Unknown]
  - Eye irritation [Unknown]
  - Alcoholism [Unknown]
  - Rash [Unknown]
  - Tremor [Unknown]
  - Hair injury [Unknown]
